FAERS Safety Report 11006037 (Version 1)
Quarter: 2015Q2

REPORT INFORMATION
  Report Type: Spontaneous
  Country: RU (occurrence: RU)
  Receive Date: 20150409
  Receipt Date: 20150409
  Transmission Date: 20150821
  Serious: Yes (Other)
  Sender: FDA-Public Use
  Company Number: RU-BAYER-2015-076364

PATIENT
  Sex: Female

DRUGS (1)
  1. YAZ [Suspect]
     Active Substance: DROSPIRENONE\ETHINYL ESTRADIOL
     Indication: VAGINAL HAEMORRHAGE

REACTIONS (5)
  - Angina pectoris [None]
  - Abdominal pain lower [None]
  - Migraine [None]
  - Metrorrhagia [None]
  - Product use issue [None]
